FAERS Safety Report 8533773-7 (Version None)
Quarter: 2012Q3

REPORT INFORMATION
  Report Type: 
  Country: None (occurrence: None)
  Receive Date: 20120711
  Receipt Date: 20110324
  Transmission Date: 20120928
  Serious: No
  Sender: FDA-Public Use
  Company Number: PP11-002

PATIENT
  Sex: Female

DRUGS (3)
  1. ALLERGENIC EXTRACT OF VARIOUS MOLDS, WEEDS, GRASSES, TREES, INHALANTS [Suspect]
     Indication: RHINITIS ALLERGIC
  2. ALLERGENIC EXTRACT OF VARIOUS MOLDS, WEEDS, GRASSES, TREES, INHALANTS [Suspect]
  3. ALLERGENIC EXTRACT OF VARIOUS MOLDS, WEEDS, GRASSES, TREES, INHALANTS [Suspect]

REACTIONS (3)
  - DRUG INTOLERANCE [None]
  - OEDEMA PERIPHERAL [None]
  - PYREXIA [None]
